FAERS Safety Report 8618316-1 (Version None)
Quarter: 2012Q3

REPORT INFORMATION
  Report Type: 
  Country: None (occurrence: None)
  Receive Date: 20120824
  Receipt Date: 20120817
  Transmission Date: 20120928
  Serious: No
  Sender: FDA-Public Use
  Company Number: US-BIOGENIDEC-2012BI022309

PATIENT
  Sex: Female

DRUGS (1)
  1. TYSABRI [Suspect]
     Indication: MULTIPLE SCLEROSIS
     Route: 042
     Dates: start: 20120425, end: 20120606

REACTIONS (4)
  - HYPOAESTHESIA [None]
  - BURNING SENSATION [None]
  - HYPERSENSITIVITY [None]
  - URTICARIA [None]
